FAERS Safety Report 6399312-4 (Version None)
Quarter: 2009Q4

REPORT INFORMATION
  Report Type: 
  Country: None (occurrence: None)
  Receive Date: 20091014
  Receipt Date: 20070606
  Transmission Date: 20100525
  Serious: Yes (Other)
  Sender: FDA-Public Use
  Company Number: US-ASTRAZENECA-2006UW26098

PATIENT
  Age: 423 Month
  Sex: Female
  Weight: 106.6 kg

DRUGS (24)
  1. SEROQUEL [Suspect]
     Indication: SLEEP DISORDER
     Route: 048
     Dates: start: 20041101, end: 20060101
  2. SEROQUEL [Suspect]
     Indication: DEPRESSION
     Route: 048
     Dates: start: 20041101, end: 20060101
  3. SEROQUEL [Suspect]
     Dosage: 25-250 MG
     Route: 048
     Dates: start: 20040101
  4. SEROQUEL [Suspect]
     Dosage: 25-250 MG
     Route: 048
     Dates: start: 20040101
  5. CLONOPIN [Concomitant]
  6. LEXAPRO [Concomitant]
  7. LAMICTAL [Concomitant]
  8. LASIX [Concomitant]
     Dates: start: 20030101
  9. SYNTHROID [Concomitant]
     Dosage: 0125 MG AND 0.200 MG EVERYDAY
     Dates: start: 19970101
  10. PAXIL [Concomitant]
     Dates: start: 20040101
  11. AMITRIPTYLINE [Concomitant]
     Dates: start: 20040101
  12. IMITREX [Concomitant]
     Indication: MIGRAINE
     Dates: start: 20030101
  13. TRAZODONE [Concomitant]
     Dates: start: 20040101
  14. BUSPAR [Concomitant]
     Dates: start: 20040101
  15. ROBAXIN [Concomitant]
     Dates: start: 20040101
  16. NAPROSYN [Concomitant]
     Dates: start: 20040101
  17. CLONAZEPAM [Concomitant]
     Route: 048
     Dates: start: 20070101
  18. LAMOTRIGINE [Concomitant]
     Dates: start: 20070101
  19. METRONIDAZOLE [Concomitant]
     Dates: start: 20070101
  20. PROMETHAZINE [Concomitant]
     Dates: start: 20070101
  21. FLUCONAZOLE [Concomitant]
     Dates: start: 20070101
  22. BENZTROPINE MESYLATE [Concomitant]
     Dates: start: 20070101
  23. HALOPERIDOL [Concomitant]
     Dates: start: 20070101
  24. LORAZEPAM [Concomitant]
     Dates: start: 20070101

REACTIONS (6)
  - DIABETES MELLITUS [None]
  - DIABETIC COMA [None]
  - KETOACIDOSIS [None]
  - POST-TRAUMATIC STRESS DISORDER [None]
  - SYSTEMIC LUPUS ERYTHEMATOSUS [None]
  - TYPE 2 DIABETES MELLITUS [None]
